FAERS Safety Report 6164002-X (Version None)
Quarter: 2009Q2

REPORT INFORMATION
  Report Type: 
  Country: None (occurrence: None)
  Receive Date: 20090422
  Receipt Date: 20090409
  Transmission Date: 20091009
  Serious: Yes (Hospitalization, Other)
  Sender: FDA-Public Use
  Company Number: JP-SANOFI-SYNTHELABO-A01200902154

PATIENT
  Sex: Female
  Weight: 55 kg

DRUGS (10)
  1. DIPHENHYDRAMINE HCL [Concomitant]
     Indication: PREMEDICATION
     Route: 048
     Dates: start: 20090218, end: 20090218
  2. DECADRON [Concomitant]
     Indication: PREMEDICATION
     Route: 042
     Dates: start: 20080903, end: 20090218
  3. KYTRIL [Concomitant]
     Indication: PREMEDICATION
     Route: 042
     Dates: start: 20080903, end: 20090218
  4. FLUOROURACIL [Concomitant]
     Indication: LARGE INTESTINE CARCINOMA
     Dosage: 600MG/BODY (408.2MG/M2) IN BOLUS THEN 3500MG/BODY/D1-2 (2381MG/M2/D1-2) AS CONTINUOUS INFUSION
     Route: 040
     Dates: start: 20090121, end: 20090121
  5. FLUOROURACIL [Concomitant]
     Route: 041
     Dates: start: 20090121, end: 20090122
  6. AVASTIN [Concomitant]
     Indication: LARGE INTESTINE CARCINOMA
     Route: 041
     Dates: start: 20090218, end: 20090218
  7. ELPLAT [Suspect]
     Indication: LARGE INTESTINE CARCINOMA
     Route: 041
     Dates: start: 20090204, end: 20090204
  8. ELPLAT [Suspect]
     Route: 041
     Dates: start: 20090218, end: 20090218
  9. LEVOFOLINATE [Concomitant]
     Indication: LARGE INTESTINE CARCINOMA
     Route: 041
     Dates: start: 20090204, end: 20090204
  10. LEVOFOLINATE [Concomitant]
     Route: 041
     Dates: start: 20090218, end: 20090218

REACTIONS (2)
  - ANAPHYLACTIC SHOCK [None]
  - URTICARIA [None]
